FAERS Safety Report 12984921 (Version 1)
Quarter: 2016Q4

REPORT INFORMATION
  Report Type: Spontaneous
  Country: GB (occurrence: GB)
  Receive Date: 20161129
  Receipt Date: 20161129
  Transmission Date: 20170207
  Serious: Yes (Other)
  Sender: FDA-Public Use
  Company Number: GB-TEVA-714465ACC

PATIENT
  Age: 67 Year
  Sex: Female
  Weight: 66 kg

DRUGS (8)
  1. ZOMORPH [Concomitant]
     Active Substance: MORPHINE SULFATE
     Dosage: 1 DOSAGE FORMS DAILY; NOCTE -7PM
     Dates: start: 20161011
  2. GABAPENTIN. [Suspect]
     Active Substance: GABAPENTIN
     Dates: start: 20150804
  3. AZELASTINE [Concomitant]
     Active Substance: AZELASTINE
     Dosage: 2 DOSAGE FORMS DAILY;
     Dates: start: 20160511
  4. SALBUTAMOL [Concomitant]
     Active Substance: ALBUTEROL
     Route: 055
     Dates: start: 20160511
  5. FLUTICASONE PROPIONATE. [Concomitant]
     Active Substance: FLUTICASONE PROPIONATE
     Dosage: INHALE 1 OR 2 PUFFS TWICE DAILY
     Route: 055
     Dates: start: 20160511
  6. DICLOFENACDIETHYLAMMONIUM [Concomitant]
     Dosage: 3 DOSAGE FORMS DAILY;
     Dates: start: 20160923, end: 20160930
  7. TIOTROPIUM [Concomitant]
     Active Substance: TIOTROPIUM
     Dosage: 1 DOSAGE FORMS DAILY;
     Route: 055
     Dates: start: 20160511
  8. COCODAMOL [Concomitant]
     Active Substance: ACETAMINOPHEN\CODEINE PHOSPHATE
     Dosage: 4 DOSAGE FORMS DAILY;
     Dates: start: 20160511

REACTIONS (1)
  - Confusional state [Recovered/Resolved]

NARRATIVE: CASE EVENT DATE: 20161105
